FAERS Safety Report 8337584-7 (Version None)
Quarter: 2012Q2

REPORT INFORMATION
  Report Type: 
  Country: None (occurrence: None)
  Receive Date: 20120504
  Receipt Date: 20120426
  Transmission Date: 20120825
  Serious: Yes (Other)
  Sender: FDA-Public Use
  Company Number: PHEH2012US009000

PATIENT

DRUGS (1)
  1. EXELON [Suspect]
     Route: 062

REACTIONS (4)
  - DEMENTIA WITH LEWY BODIES [None]
  - CONFUSIONAL STATE [None]
  - HALLUCINATION [None]
  - DELUSION [None]
